FAERS Safety Report 18301698 (Version 1)
Quarter: 2020Q3

REPORT INFORMATION
  Report Type: Spontaneous
  Country: CN (occurrence: CN)
  Receive Date: 20200923
  Receipt Date: 20200923
  Transmission Date: 20201103
  Serious: Yes (Hospitalization, Other)
  Sender: FDA-Public Use
  Company Number: CN-BAXTER-2020BAX019444

PATIENT
  Age: 45 Year
  Sex: Female
  Weight: 48.8 kg

DRUGS (9)
  1. EPIRUBICIN HYDROCHLORIDE. [Suspect]
     Active Substance: EPIRUBICIN HYDROCHLORIDE
     Indication: BREAST CANCER FEMALE
     Route: 065
  2. EPIRUBICIN HYDROCHLORIDE. [Suspect]
     Active Substance: EPIRUBICIN HYDROCHLORIDE
     Dosage: 0.9% NS 100 ML + EPIRUBICIN HYDROCHLORIDE 100 MG
     Route: 041
     Dates: start: 20200911, end: 20200911
  3. 0.9% SODIUM CHLORIDE INJECTION [Suspect]
     Active Substance: SODIUM CHLORIDE
     Dosage: 0.9% NS 100 ML + DOCETAXEL 100 MG
     Route: 041
     Dates: start: 20200911, end: 20200911
  4. AOMINGRUN [Suspect]
     Active Substance: DOCETAXEL
     Dosage: 0.9% NS 100 ML + DOCETAXEL 100 MG
     Route: 041
     Dates: start: 20200911, end: 20200911
  5. 0.9% SODIUM CHLORIDE INJECTION [Suspect]
     Active Substance: SODIUM CHLORIDE
     Dosage: 0.9% NS 100 ML + EPIRUBICIN HYDROCHLORIDE 100 MG
     Route: 041
     Dates: start: 20200911, end: 20200911
  6. ENDOXAN [Suspect]
     Active Substance: CYCLOPHOSPHAMIDE
     Indication: BREAST CANCER FEMALE
     Route: 065
  7. ENDOXAN [Suspect]
     Active Substance: CYCLOPHOSPHAMIDE
     Dosage: 0.9% NS 100 ML + ENDOXAN 0.7 G
     Route: 041
     Dates: start: 20200911, end: 20200911
  8. 0.9% SODIUM CHLORIDE INJECTION [Suspect]
     Active Substance: SODIUM CHLORIDE
     Indication: MEDICATION DILUTION
     Dosage: 0.9% NS 100 ML + ENDOXAN 0.7 G
     Route: 041
     Dates: start: 20200911, end: 20200911
  9. AOMINGRUN [Suspect]
     Active Substance: DOCETAXEL
     Indication: BREAST CANCER FEMALE
     Route: 065

REACTIONS (2)
  - Leukopenia [Recovered/Resolved]
  - Leukopenia [Unknown]

NARRATIVE: CASE EVENT DATE: 20200914
